FAERS Safety Report 8062629-1 (Version None)
Quarter: 2012Q1

REPORT INFORMATION
  Report Type: 
  Country: None (occurrence: None)
  Receive Date: 20120123
  Receipt Date: 20120113
  Transmission Date: 20120608
  Serious: Yes (Hospitalization, Disabling, Other)
  Sender: FDA-Public Use
  Company Number: JP-ASTELLAS-2011JP007987

PATIENT
  Sex: Male
  Weight: 81 kg

DRUGS (6)
  1. SULFAMETHOXAZOLE [Concomitant]
     Dosage: 2 DF, 3XWEEKLY
     Route: 048
  2. PROGRAF [Suspect]
     Indication: PROPHYLAXIS AGAINST GRAFT VERSUS HOST DISEASE
     Dosage: 3.5 MG, BID
     Route: 048
     Dates: start: 20090818, end: 20100209
  3. PROGRAF [Suspect]
     Dosage: 5 MG, UNKNOWN/D
     Route: 048
     Dates: start: 20100210, end: 20100213
  4. ETOPOSIDE [Suspect]
     Indication: PREMEDICATION
     Dosage: UNK
     Route: 065
     Dates: start: 20090801
  5. METHOTREXATE [Concomitant]
     Indication: PROPHYLAXIS AGAINST GRAFT VERSUS HOST DISEASE
     Route: 065
  6. CYCLOPHOSPHAMIDE [Suspect]
     Indication: PREMEDICATION
     Dosage: UNK
     Route: 065
     Dates: start: 20090801

REACTIONS (3)
  - THROMBOTIC MICROANGIOPATHY [None]
  - DRUG INEFFECTIVE [None]
  - GRAFT VERSUS HOST DISEASE [None]
